FAERS Safety Report 25181493 (Version 1)
Quarter: 2025Q2

REPORT INFORMATION
  Report Type: Spontaneous
  Country: FR (occurrence: FR)
  Receive Date: 20250410
  Receipt Date: 20250410
  Transmission Date: 20250717
  Serious: Yes (Hospitalization)
  Sender: ACCORD
  Company Number: None

PATIENT
  Age: 49 Year
  Sex: Male
  Weight: 84 kg

DRUGS (13)
  1. METHOTREXATE [Suspect]
     Active Substance: METHOTREXATE
     Indication: Testis cancer
     Dosage: J21
     Dates: start: 20250203, end: 20250203
  2. CYTARABINE [Suspect]
     Active Substance: CYTARABINE
     Indication: Testis cancer
     Dosage: POWDER FOR SOLUTION, D1 TO D6
     Dates: start: 20250204, end: 20250210
  3. DAUNORUBICIN HYDROCHLORIDE [Suspect]
     Active Substance: DAUNORUBICIN HYDROCHLORIDE
     Indication: Testis cancer
     Dosage: D1 TO D3
     Dates: start: 20250204, end: 20250206
  4. PANTOPRAZOLE [Concomitant]
     Active Substance: PANTOPRAZOLE
     Indication: Product used for unknown indication
     Dates: start: 20250210, end: 20250224
  5. METOCLOPRAMIDE HYDROCHLORIDE [Concomitant]
     Active Substance: METOCLOPRAMIDE HYDROCHLORIDE
     Indication: Prophylaxis of nausea and vomiting
     Dosage: 1 TO 3 PER DAY
     Dates: start: 20250206, end: 20250213
  6. ONDANSETRON [Concomitant]
     Active Substance: ONDANSETRON
     Indication: Prophylaxis of nausea and vomiting
     Dosage: 1 TO 2 PER DAY
     Dates: start: 20250207, end: 20250211
  7. POSACONAZOLE [Concomitant]
     Active Substance: POSACONAZOLE
     Indication: Antifungal prophylaxis
     Dates: start: 20250211, end: 20250214
  8. VITAMIN K [Concomitant]
     Active Substance: PHYTONADIONE
     Indication: Vitamin supplementation
     Dosage: MONDAY, WEDNESDAY AND FRIDAY, AMPOULE
     Dates: start: 20250204, end: 20250223
  9. VALACYCLOVIR HYDROCHLORIDE [Concomitant]
     Active Substance: VALACYCLOVIR HYDROCHLORIDE
     Indication: Antiviral prophylaxis
     Dosage: ONGOING
     Dates: start: 20250203
  10. POSACONAZOLE [Concomitant]
     Active Substance: POSACONAZOLE
     Indication: Antifungal prophylaxis
     Dates: start: 20250215, end: 20250223
  11. CYTARABINE [Suspect]
     Active Substance: CYTARABINE
     Indication: Testis cancer
     Dosage: J0
     Dates: start: 20250203, end: 20250203
  12. CYTARABINE [Suspect]
     Active Substance: CYTARABINE
     Indication: Testis cancer
     Dosage: D21
     Dates: start: 20250224, end: 20250224
  13. METHOTREXATE [Suspect]
     Active Substance: METHOTREXATE
     Indication: Testis cancer
     Dosage: J21
     Dates: start: 20250224, end: 20250224

REACTIONS (1)
  - Erythema [Recovering/Resolving]

NARRATIVE: CASE EVENT DATE: 20250210
